FAERS Safety Report 6641175-3 (Version None)
Quarter: 2010Q1

REPORT INFORMATION
  Report Type: 
  Country: None (occurrence: None)
  Receive Date: 20100303
  Receipt Date: 20090622
  Transmission Date: 20100710
  Serious: Yes (Other)
  Sender: FDA-Public Use
  Company Number: 640125

PATIENT
  Age: 73 Year
  Sex: Female
  Weight: 78.5 kg

DRUGS (5)
  1. BONIVA [Suspect]
     Indication: OSTEOPOROSIS
     Dosage: 3 MG 1 PER 3 MONTH INTRAVENOUS
     Route: 042
     Dates: start: 20090610, end: 20090610
  2. DIOVAN [Concomitant]
  3. AVANDAMET [Concomitant]
  4. JANUVIA (SITAGLIPTIN) [Concomitant]
  5. ZOCOR [Concomitant]

REACTIONS (7)
  - INJECTION SITE CELLULITIS [None]
  - INJECTION SITE ERYTHEMA [None]
  - INJECTION SITE EXTRAVASATION [None]
  - INJECTION SITE INDURATION [None]
  - INJECTION SITE INFLAMMATION [None]
  - INJECTION SITE PAIN [None]
  - INJECTION SITE WARMTH [None]
